FAERS Safety Report 13978040 (Version 8)
Quarter: 2018Q3

REPORT INFORMATION
  Report Type: Spontaneous
  Country: US (occurrence: US)
  Receive Date: 20170915
  Receipt Date: 20180803
  Transmission Date: 20181010
  Serious: Yes (Other)
  Sender: FDA-Public Use
  Company Number: US-JNJFOC-20170908839

PATIENT
  Age: 59 Year
  Sex: Female
  Weight: 61.24 kg

DRUGS (3)
  1. WOMENS ROGAINE UNSCENTED [Suspect]
     Active Substance: MINOXIDIL
     Route: 061
  2. WOMENS ROGAINE UNSCENTED [Suspect]
     Active Substance: MINOXIDIL
     Indication: ALOPECIA
     Dosage: HALF A CAP, ONCE A DAY AT BEDTIME
     Route: 061
     Dates: start: 201708, end: 20170830
  3. SERTRALINE [Concomitant]
     Active Substance: SERTRALINE HYDROCHLORIDE
     Indication: DEPRESSION
     Route: 065
     Dates: start: 2015

REACTIONS (10)
  - Fall [Recovered/Resolved]
  - Eye haemorrhage [Unknown]
  - Blood pressure decreased [Recovered/Resolved]
  - Eye contusion [Recovering/Resolving]
  - Tooth injury [Unknown]
  - Tooth fracture [Recovered/Resolved]
  - Contusion [Unknown]
  - Feeling abnormal [Recovering/Resolving]
  - Syncope [Recovered/Resolved]
  - Facial pain [Recovering/Resolving]

NARRATIVE: CASE EVENT DATE: 201708
